FAERS Safety Report 9445974 (Version 1)
Quarter: 2013Q3

REPORT INFORMATION
  Report Type: Spontaneous
  Country: FR (occurrence: FR)
  Receive Date: 20130807
  Receipt Date: 20130807
  Transmission Date: 20140515
  Serious: Yes (Other)
  Sender: FDA-Public Use
  Company Number: FR-ROCHE-1258182

PATIENT
  Age: 42 Year
  Sex: Female

DRUGS (1)
  1. RITUXIMAB [Suspect]
     Indication: RHEUMATOID ARTHRITIS
     Dosage: 4 COURSE OF TREATMENT
     Route: 065

REACTIONS (2)
  - Joint tuberculosis [Unknown]
  - Immune reconstitution inflammatory syndrome [Unknown]
